FAERS Safety Report 15412484 (Version 1)
Quarter: 2018Q3

REPORT INFORMATION
  Report Type: Spontaneous
  Country: US (occurrence: US)
  Receive Date: 20180921
  Receipt Date: 20180921
  Transmission Date: 20181010
  Serious: No
  Sender: FDA-Public Use
  Company Number: US-SA-2018SA260007

PATIENT
  Age: 69 Year
  Sex: Female

DRUGS (1)
  1. ALLEGRA [Suspect]
     Active Substance: FEXOFENADINE HYDROCHLORIDE
     Indication: PRURITUS
     Dosage: 60 MG, QD (IN MORNING)
     Route: 065
     Dates: start: 20180905

REACTIONS (3)
  - Drug dose omission [Unknown]
  - Eye pruritus [Unknown]
  - Therapeutic response decreased [Unknown]
